FAERS Safety Report 25052440 (Version 1)
Quarter: 2025Q1

REPORT INFORMATION
  Report Type: Spontaneous
  Country: US (occurrence: US)
  Receive Date: 20250307
  Receipt Date: 20250307
  Transmission Date: 20250409
  Serious: No
  Sender: GALDERMA
  Company Number: US-GALDERMA-US2024018756

PATIENT

DRUGS (5)
  1. PROACTIV MD ADAPALENE ACNE TREATMENT [Suspect]
     Active Substance: ADAPALENE
     Indication: Acne
     Route: 061
     Dates: start: 20241203, end: 20241210
  2. Proactiv MD Ultra Gentle Cleanser [Concomitant]
     Indication: Acne
     Route: 061
     Dates: start: 20241203, end: 20241210
  3. COSMETICS [Concomitant]
     Active Substance: COSMETICS
     Indication: Acne
     Route: 061
     Dates: start: 20241203, end: 20241210
  4. PROACTIV ACNE BODY WASH [Concomitant]
     Active Substance: SALICYLIC ACID
     Indication: Acne
     Route: 061
     Dates: start: 20241203, end: 20241210
  5. PROACTIV BLACKHEAD DISSOLVING [Concomitant]
     Active Substance: SALICYLIC ACID
     Indication: Acne
     Route: 061
     Dates: start: 20241203, end: 20241210

REACTIONS (6)
  - Skin burning sensation [Not Recovered/Not Resolved]
  - Acne [Not Recovered/Not Resolved]
  - Erythema [Not Recovered/Not Resolved]
  - Skin irritation [Not Recovered/Not Resolved]
  - Dry skin [Not Recovered/Not Resolved]
  - Rash macular [Not Recovered/Not Resolved]

NARRATIVE: CASE EVENT DATE: 20241207
